FAERS Safety Report 9791701 (Version 1)
Quarter: 2014Q1

REPORT INFORMATION
  Report Type: Spontaneous
  Country: US (occurrence: US)
  Receive Date: 20140102
  Receipt Date: 20140102
  Transmission Date: 20141002
  Serious: Yes (Hospitalization, Other)
  Sender: FDA-Public Use
  Company Number: US-AMGEN-USASP2013091353

PATIENT
  Age: 64 Year
  Sex: Female

DRUGS (1)
  1. ENBREL [Suspect]
     Indication: RHEUMATOID ARTHRITIS
     Dosage: 50 MG, QWK
     Route: 065
     Dates: start: 20051222

REACTIONS (8)
  - Bone graft [Recovered/Resolved]
  - Central venous catheterisation [Recovered/Resolved]
  - Staphylococcal sepsis [Recovered/Resolved]
  - Wound infection pseudomonas [Recovered/Resolved]
  - Wound drainage [Recovered/Resolved]
  - Memory impairment [Unknown]
  - Bone disorder [Unknown]
  - Limb discomfort [Recovered/Resolved]
